FAERS Safety Report 13008075 (Version 1)
Quarter: 2016Q4

REPORT INFORMATION
  Report Type: Spontaneous
  Country: US (occurrence: US)
  Receive Date: 20161208
  Receipt Date: 20161208
  Transmission Date: 20170207
  Serious: No
  Sender: FDA-Public Use
  Company Number: US-ASTRAZENECA-2016SF17975

PATIENT
  Age: 56 Year
  Sex: Male
  Weight: 91.2 kg

DRUGS (3)
  1. SYMBICORT [Suspect]
     Active Substance: BUDESONIDE\FORMOTEROL FUMARATE DIHYDRATE
     Indication: CHRONIC OBSTRUCTIVE PULMONARY DISEASE
     Dosage: 160/4.5 MCG 2 PUFFS IN AM AND 1 PUFF IN PM
     Route: 055
  2. OXYGEN. [Concomitant]
     Active Substance: OXYGEN
     Indication: CHRONIC OBSTRUCTIVE PULMONARY DISEASE
     Route: 045
     Dates: start: 201501
  3. METHADONE [Concomitant]
     Active Substance: METHADONE HYDROCHLORIDE
     Indication: PAIN
     Route: 065

REACTIONS (9)
  - Wrist fracture [Unknown]
  - Off label use [Unknown]
  - Fall [Unknown]
  - Decreased activity [Unknown]
  - Oxygen saturation decreased [Unknown]
  - Depressed mood [Unknown]
  - Pneumonia [Unknown]
  - Forearm fracture [Unknown]
  - Weight increased [Unknown]

NARRATIVE: CASE EVENT DATE: 2009
